FAERS Safety Report 5400126-X (Version None)
Quarter: 2007Q3

REPORT INFORMATION
  Report Type: 
  Country: None (occurrence: None)
  Receive Date: 20070725
  Receipt Date: 20070710
  Transmission Date: 20080115
  Serious: Yes (Hospitalization)
  Sender: FDA-Public Use
  Company Number: CAP07000215

PATIENT
  Age: 77 Year
  Sex: Female
  Weight: 35.8 kg

DRUGS (3)
  1. MACROBID [Suspect]
     Dosage: 1 CAPSUL, BEDTIME, ORAL
     Route: 048
     Dates: start: 20031219
  2. ZESTRIL [Concomitant]
  3. AZATHIOPRINE [Concomitant]

REACTIONS (9)
  - ACTIVITIES OF DAILY LIVING IMPAIRED [None]
  - COLLAGEN-VASCULAR DISEASE [None]
  - FATIGUE [None]
  - INTERSTITIAL LUNG DISEASE [None]
  - ORAL INTAKE REDUCED [None]
  - PULMONARY FIBROSIS [None]
  - RENAL IMPAIRMENT [None]
  - SHOCK [None]
  - WEIGHT DECREASED [None]
